FAERS Safety Report 8612437-5 (Version None)
Quarter: 2012Q3

REPORT INFORMATION
  Report Type: 
  Country: None (occurrence: None)
  Receive Date: 20120822
  Receipt Date: 20120814
  Transmission Date: 20120928
  Serious: Yes (Other)
  Sender: FDA-Public Use
  Company Number: US-ALLERGAN-1210149US

PATIENT
  Age: 66 Year
  Sex: Male
  Weight: 81.633 kg

DRUGS (5)
  1. OZURDEX [Suspect]
     Indication: MACULAR OEDEMA
     Dosage: 0.7 MG, SINGLE
     Route: 031
     Dates: start: 20120111, end: 20120111
  2. OZURDEX [Suspect]
     Dosage: 0.7 MG, SINGLE
     Route: 031
     Dates: start: 20111003, end: 20111003
  3. OZURDEX [Suspect]
     Indication: RETINAL VEIN OCCLUSION
     Dosage: 0.7 MG, SINGLE
     Route: 031
     Dates: start: 20120418, end: 20120418
  4. OZURDEX [Suspect]
     Dosage: 0.7 MG, SINGLE
     Route: 031
     Dates: start: 20110630, end: 20110630
  5. OZURDEX [Suspect]
     Dosage: 0.7 MG, SINGLE
     Route: 031
     Dates: start: 20101213, end: 20101213

REACTIONS (6)
  - IRITIS [None]
  - VISUAL ACUITY REDUCED [None]
  - HYPOPYON [None]
  - VITREOUS FLOATERS [None]
  - ENDOPHTHALMITIS [None]
  - EYE PAIN [None]
